FAERS Safety Report 18419041 (Version 1)
Quarter: 2020Q4

REPORT INFORMATION
  Report Type: Spontaneous
  Country: GB (occurrence: GB)
  Receive Date: 20201023
  Receipt Date: 20201023
  Transmission Date: 20210114
  Serious: Yes (Life-Threatening, Hospitalization, Other)
  Sender: FDA-Public Use
  Company Number: GB-BION-009148

PATIENT
  Age: 44 Year
  Sex: Female

DRUGS (1)
  1. IBUPROFEN. [Suspect]
     Active Substance: IBUPROFEN
     Route: 048

REACTIONS (11)
  - Metabolic acidosis [Recovered/Resolved]
  - Paralysis [Recovered/Resolved]
  - Drug dependence [Unknown]
  - Quadriparesis [Recovered/Resolved]
  - Hypotonia [Recovered/Resolved]
  - Intentional overdose [Unknown]
  - Hypoaldosteronism [Recovered/Resolved]
  - Fall [Unknown]
  - Toxicity to various agents [Recovered/Resolved]
  - Electrocardiogram U-wave abnormality [Recovered/Resolved]
  - Renal tubular acidosis [Recovered/Resolved]
